FAERS Safety Report 9278149 (Version 1)
Quarter: 2013Q2

REPORT INFORMATION
  Report Type: Report from Study
  Country: US (occurrence: US)
  Receive Date: 20130508
  Receipt Date: 20130508
  Transmission Date: 20140414
  Serious: Yes (Hospitalization, Disabling)
  Sender: FDA-Public Use
  Company Number: US-ASTELLAS-2013US004814

PATIENT
  Age: 60 Year
  Sex: Male
  Weight: 154 kg

DRUGS (5)
  1. ERLOTINIB TABLET [Suspect]
     Indication: NON-SMALL CELL LUNG CANCER
     Dosage: 150 MG, UID/QD
     Route: 048
     Dates: start: 20121101, end: 20121201
  2. ERLOTINIB TABLET [Suspect]
     Dosage: 100 MG, UID/QD
     Route: 048
     Dates: start: 20121201, end: 20130101
  3. ERLOTINIB TABLET [Suspect]
     Dosage: 50 MG, UID/QD
     Route: 048
     Dates: start: 20130101
  4. OXYGEN [Concomitant]
     Indication: CARDIAC FAILURE CONGESTIVE
     Dosage: UNK
     Route: 055
  5. COUMADIN                           /00014802/ [Concomitant]
     Indication: ATRIAL FIBRILLATION
     Dosage: UNK
     Route: 065

REACTIONS (11)
  - Gas poisoning [Recovering/Resolving]
  - Muscular weakness [Unknown]
  - Abasia [Not Recovered/Not Resolved]
  - Epistaxis [Recovering/Resolving]
  - Muscular weakness [Not Recovered/Not Resolved]
  - Fluid retention [Recovering/Resolving]
  - Fall [Not Recovered/Not Resolved]
  - Dyspnoea [Recovering/Resolving]
  - Pneumonia [Recovering/Resolving]
  - Weight decreased [Unknown]
  - Rash [Unknown]
